FAERS Safety Report 10081658 (Version 2)
Quarter: 2014Q2

REPORT INFORMATION
  Report Type: Spontaneous
  Country: BR (occurrence: BR)
  Receive Date: 20140416
  Receipt Date: 20140430
  Transmission Date: 20141212
  Serious: Yes (Hospitalization)
  Sender: FDA-Public Use
  Company Number: BR-ASTRAZENECA-2014SE24880

PATIENT
  Age: 61 Year
  Sex: Female
  Weight: 74 kg

DRUGS (7)
  1. CRESTOR [Suspect]
     Indication: BLOOD CHOLESTEROL INCREASED
     Route: 048
     Dates: start: 201303
  2. CRESTOR [Suspect]
     Indication: BLOOD TRIGLYCERIDES INCREASED
     Route: 048
     Dates: start: 201303
  3. ATORVASTATIN [Concomitant]
     Indication: BLOOD CHOLESTEROL INCREASED
     Route: 048
     Dates: start: 201303
  4. ATORVASTATIN [Concomitant]
     Indication: BLOOD TRIGLYCERIDES INCREASED
     Route: 048
     Dates: start: 201303
  5. ENALAPRIL [Concomitant]
     Indication: HYPERTENSION
     Route: 048
  6. FLUOXETIN [Concomitant]
     Indication: DEPRESSION
     Dosage: AT NIGHT
     Route: 048
  7. PARACETAMOL [Concomitant]
     Dosage: DAILY
     Route: 048

REACTIONS (1)
  - Arteriosclerosis [Recovered/Resolved]
